FAERS Safety Report 16002001 (Version 2)
Quarter: 2019Q1

REPORT INFORMATION
  Report Type: Spontaneous
  Country: US (occurrence: US)
  Receive Date: 20190225
  Receipt Date: 20190306
  Transmission Date: 20190418
  Serious: Yes (Hospitalization, Other)
  Sender: FDA-Public Use
  Company Number: US-PFIZER INC-2018087792

PATIENT
  Age: 82 Year
  Sex: Female
  Weight: 53.7 kg

DRUGS (1)
  1. XELJANZ [Suspect]
     Active Substance: TOFACITINIB CITRATE
     Indication: RHEUMATOID ARTHRITIS
     Dosage: 5 MG, 2X/DAY
     Route: 048

REACTIONS (6)
  - Weight decreased [Unknown]
  - Dementia Alzheimer^s type [Unknown]
  - Inflammation [Unknown]
  - Cerebrovascular accident [Unknown]
  - Speech disorder [Unknown]
  - Pain [Unknown]

NARRATIVE: CASE EVENT DATE: 201812
